FAERS Safety Report 4360769-1 (Version None)
Quarter: 2004Q2

REPORT INFORMATION
  Report Type: 
  Country: None (occurrence: None)
  Receive Date: 20040519
  Receipt Date: 20040504
  Transmission Date: 20050107
  Serious: Yes (Death, Hospitalization, Other)
  Sender: FDA-Public Use
  Company Number: A-US2004-05378

PATIENT
  Age: 42 Year
  Sex: Female

DRUGS (3)
  1. TRACLEER [Suspect]
     Indication: PULMONARY HYPERTENSION
     Dosage: 62.5 MG QD, ORAL
     Route: 048
     Dates: start: 20040114, end: 20040211
  2. NIFEDIPINE XL (NIFEDIPINE) [Concomitant]
  3. LASIX [Concomitant]

REACTIONS (19)
  - ABDOMINAL DISTENSION [None]
  - ABDOMINAL PAIN [None]
  - ALANINE AMINOTRANSFERASE INCREASED [None]
  - ASCITES [None]
  - ASPARTATE AMINOTRANSFERASE INCREASED [None]
  - BLOOD ALKALINE PHOSPHATASE INCREASED [None]
  - CARDIAC ARREST [None]
  - CITROBACTER INFECTION [None]
  - COMA [None]
  - CONSTIPATION [None]
  - DYSPNOEA [None]
  - HYPONATRAEMIA [None]
  - HYPOXIC ENCEPHALOPATHY [None]
  - LIVER FUNCTION TEST ABNORMAL [None]
  - MYOCARDIAL INFARCTION [None]
  - RESPIRATORY ARREST [None]
  - URINARY TRACT INFECTION [None]
  - VASCULITIS GASTROINTESTINAL [None]
  - VOMITING [None]
